FAERS Safety Report 16210047 (Version 1)
Quarter: 2019Q2

REPORT INFORMATION
  Report Type: Spontaneous
  Country: US (occurrence: US)
  Receive Date: 20190313
  Receipt Date: 20190313
  Transmission Date: 20190711
  Serious: Yes (Other)
  Sender: FDA-Public Use
  Company Number: None

PATIENT
  Age: 27 Year
  Sex: Male
  Weight: 96.16 kg

DRUGS (1)
  1. CHANTIX [Suspect]
     Active Substance: VARENICLINE TARTRATE
     Indication: TOBACCO ABUSE
     Route: 048
     Dates: start: 201903, end: 20190304

REACTIONS (5)
  - Suicidal ideation [None]
  - Agitation [None]
  - Irritability [None]
  - Hallucination, auditory [None]
  - Depression [None]

NARRATIVE: CASE EVENT DATE: 20190304
